FAERS Safety Report 21986651 (Version 1)
Quarter: 2023Q1

REPORT INFORMATION
  Report Type: Spontaneous
  Country: US (occurrence: US)
  Receive Date: 20230213
  Receipt Date: 20230213
  Transmission Date: 20230418
  Serious: No
  Sender: FDA-Public Use
  Company Number: US-PFIZER INC-202201333327

PATIENT
  Age: 61 Year
  Sex: Female

DRUGS (1)
  1. IBRANCE [Suspect]
     Active Substance: PALBOCICLIB
     Dosage: 125 MG, CYCLIC, 1X DAILY FOR 21 DAYS THEN 7 DAYS OFF
     Dates: start: 20220919

REACTIONS (2)
  - Nausea [Unknown]
  - Product dose omission issue [Unknown]
